FAERS Safety Report 16781483 (Version 1)
Quarter: 2019Q3

REPORT INFORMATION
  Report Type: Report from Study
  Country: BR (occurrence: BR)
  Receive Date: 20190906
  Receipt Date: 20190906
  Transmission Date: 20191005
  Serious: Yes (Hospitalization, Other)
  Sender: FDA-Public Use
  Company Number: BR-UCBSA-2019025951

PATIENT
  Age: 39 Year
  Sex: Female
  Weight: 50 kg

DRUGS (9)
  1. ZOLPIDEM [Concomitant]
     Active Substance: ZOLPIDEM TARTRATE
     Indication: PRODUCT USED FOR UNKNOWN INDICATION
     Dosage: UNK
  2. ONDANSETRON [Concomitant]
     Active Substance: ONDANSETRON
     Indication: PRODUCT USED FOR UNKNOWN INDICATION
     Dosage: 8 MILLILITER
  3. PARACETAMOL+CODEIN [Concomitant]
     Active Substance: ACETAMINOPHEN\CODEINE PHOSPHATE
     Indication: PAIN
     Dosage: 500 MILLIGRAM, 4X/DAY (QID)
     Route: 048
     Dates: start: 201811
  4. LEVETIRACETAM. [Suspect]
     Active Substance: LEVETIRACETAM
     Dosage: 750 MILLIGRAM, 3X/DAY (TID)
     Route: 048
     Dates: start: 201907
  5. VALPROIC ACID. [Concomitant]
     Active Substance: VALPROIC ACID
     Indication: HEADACHE
     Dosage: UNK
     Route: 048
     Dates: start: 201811
  6. NORTRIPTYLINE [Concomitant]
     Active Substance: NORTRIPTYLINE
     Indication: PRODUCT USED FOR UNKNOWN INDICATION
     Dosage: 10 MILLILITER, ONCE DAILY (QD)
  7. LEVETIRACETAM. [Suspect]
     Active Substance: LEVETIRACETAM
     Indication: SEIZURE
     Dosage: 250 MILLIGRAM, ONCE DAILY (QD)
     Route: 048
     Dates: start: 201901, end: 201907
  8. OMEPRAZOL [Concomitant]
     Active Substance: OMEPRAZOLE
     Indication: PRODUCT USED FOR UNKNOWN INDICATION
     Dosage: UNK
     Route: 048
  9. DEXAMETASONA [Concomitant]
     Active Substance: DEXAMETHASONE
     Indication: NEOPLASM MALIGNANT
     Dosage: 4 MILLIGRAM, 6X/DAY
     Route: 048
     Dates: start: 2018

REACTIONS (3)
  - Off label use [Unknown]
  - Headache [Recovering/Resolving]
  - Seizure [Recovered/Resolved]

NARRATIVE: CASE EVENT DATE: 201901
